APPROVED DRUG PRODUCT: CARISOPRODOL
Active Ingredient: CARISOPRODOL
Strength: 350MG
Dosage Form/Route: TABLET;ORAL
Application: A205513 | Product #002
Applicant: STRIDES PHARMA GLOBAL PTE LTD
Approved: Nov 12, 2015 | RLD: No | RS: No | Type: DISCN